FAERS Safety Report 24365700 (Version 1)
Quarter: 2024Q3

REPORT INFORMATION
  Report Type: Spontaneous
  Country: US (occurrence: US)
  Receive Date: 20240926
  Receipt Date: 20240926
  Transmission Date: 20241017
  Serious: Yes (Hospitalization)
  Sender: MYLAN
  Company Number: US-MYLANLABS-2024M1086497

PATIENT
  Age: 54 Year
  Sex: Female

DRUGS (23)
  1. DEXAMETHASONE [Suspect]
     Active Substance: DEXAMETHASONE
     Indication: Anaphylactic reaction
     Dosage: 10 MILLIGRAM, Q6H
     Route: 065
  2. DEXAMETHASONE [Suspect]
     Active Substance: DEXAMETHASONE
     Indication: Cytokine release syndrome
  3. EPINEPHRINE [Suspect]
     Active Substance: EPINEPHRINE
     Indication: Anaphylactic reaction
     Dosage: UNK, DRIP
     Route: 065
  4. EPINEPHRINE [Suspect]
     Active Substance: EPINEPHRINE
     Indication: Cytokine release syndrome
  5. FAMOTIDINE [Suspect]
     Active Substance: FAMOTIDINE
     Indication: Anaphylactic reaction
     Dosage: 40 MILLIGRAM, 20 MINUTES BEFORE THE PROCEDURE
     Route: 042
  6. FAMOTIDINE [Suspect]
     Active Substance: FAMOTIDINE
     Indication: Cytokine release syndrome
  7. FAMOTIDINE [Suspect]
     Active Substance: FAMOTIDINE
     Indication: Anaphylactic reaction
     Dosage: UNK
     Route: 065
  8. FAMOTIDINE [Suspect]
     Active Substance: FAMOTIDINE
     Indication: Cytokine release syndrome
  9. LORATADINE [Suspect]
     Active Substance: LORATADINE
     Indication: Anaphylactic reaction
     Dosage: 20 MILLIGRAM, BID
     Route: 065
  10. LORATADINE [Suspect]
     Active Substance: LORATADINE
     Indication: Cytokine release syndrome
  11. MONTELUKAST [Suspect]
     Active Substance: MONTELUKAST SODIUM
     Indication: Anaphylactic reaction
     Dosage: 10 MILLIGRAM,13 HOURS BEFORE THE PROCEDURE
     Route: 048
  12. MONTELUKAST [Suspect]
     Active Substance: MONTELUKAST SODIUM
     Indication: Cytokine release syndrome
  13. MONTELUKAST [Suspect]
     Active Substance: MONTELUKAST SODIUM
     Indication: Premedication
  14. PREDNISONE [Concomitant]
     Active Substance: PREDNISONE
     Indication: Premedication
     Dosage: 13 HOURS, 7 HOURS, AND 1 HOUR BEFORE THE PROCEDURE
     Route: 048
  15. ASPIRIN [Concomitant]
     Active Substance: ASPIRIN
     Indication: Premedication
     Dosage: 1 HOUR BEFORE THE PROCEDURE
     Route: 048
  16. DIPHENHYDRAMINE [Concomitant]
     Active Substance: DIPHENHYDRAMINE
     Indication: Premedication
     Dosage: 20 MINUTES BEFORE THE PROCEDURE
     Route: 042
  17. ONDANSETRON [Concomitant]
     Active Substance: ONDANSETRON
     Indication: Premedication
     Dosage: 4 MILLIGRAM
     Route: 042
  18. ACETAMINOPHEN [Concomitant]
     Active Substance: ACETAMINOPHEN
     Indication: Premedication
     Dosage: 325 MILLIGRAM
     Route: 065
  19. ACETAMINOPHEN [Concomitant]
     Active Substance: ACETAMINOPHEN
     Indication: Fatigue
  20. ACETAMINOPHEN [Concomitant]
     Active Substance: ACETAMINOPHEN
     Indication: Arthralgia
  21. METHOCARBAMOL [Concomitant]
     Active Substance: METHOCARBAMOL
     Indication: Arthralgia
     Dosage: 750 MILLIGRAM
     Route: 065
  22. METHOCARBAMOL [Concomitant]
     Active Substance: METHOCARBAMOL
     Indication: Myalgia
  23. OMALIZUMAB [Concomitant]
     Active Substance: OMALIZUMAB
     Indication: Chronic spontaneous urticaria
     Dosage: UNK
     Route: 065

REACTIONS (1)
  - Drug ineffective [Unknown]
